FAERS Safety Report 6145498-6 (Version None)
Quarter: 2009Q2

REPORT INFORMATION
  Report Type: 
  Country: None (occurrence: None)
  Receive Date: 20090402
  Receipt Date: 20090319
  Transmission Date: 20091009
  Serious: Yes (Hospitalization)
  Sender: FDA-Public Use
  Company Number: 2009000853

PATIENT
  Age: 60 Year
  Sex: Male
  Weight: 63.5 kg

DRUGS (7)
  1. ERLOTINIB (ERLOTINIB) (TABLET) (ERLOTINIB) [Suspect]
     Indication: LUNG ADENOCARCINOMA
     Dosage: (150 MG, QD), ORAL
     Route: 048
     Dates: start: 20080318, end: 20081021
  2. LEUPLIN (LEUPRORELIN ACETATE) [Concomitant]
  3. PARAPLATIN [Concomitant]
  4. TAXOTERE [Concomitant]
  5. LOPERAMIDE HCL [Concomitant]
  6. DECADRON [Concomitant]
  7. ZOFRAN [Concomitant]

REACTIONS (7)
  - ABDOMINAL PAIN UPPER [None]
  - DIARRHOEA [None]
  - DUODENITIS [None]
  - EATING DISORDER [None]
  - RASH [None]
  - STOMATITIS [None]
  - STRESS [None]
